FAERS Safety Report 6475459-9 (Version None)
Quarter: 2009Q4

REPORT INFORMATION
  Report Type: 
  Country: None (occurrence: None)
  Receive Date: 20091204
  Receipt Date: 20091123
  Transmission Date: 20100525
  Serious: No
  Sender: FDA-Public Use
  Company Number: PHHY2009FR29729

PATIENT
  Sex: Female
  Weight: 68 kg

DRUGS (1)
  1. ACLASTA [Suspect]
     Indication: OSTEOPOROSIS
     Dosage: 5 MG, UNK
     Dates: start: 20090708

REACTIONS (11)
  - ARTHRALGIA [None]
  - BONE PAIN [None]
  - EYE PAIN [None]
  - GAIT DISTURBANCE [None]
  - MALAISE [None]
  - MYALGIA [None]
  - NAUSEA [None]
  - PAROSMIA [None]
  - PELVIC PAIN [None]
  - PYREXIA [None]
  - WALKING AID USER [None]
